FAERS Safety Report 8887485 (Version 2)
Quarter: 2013Q1

REPORT INFORMATION
  Report Type: Spontaneous
  Country: FR (occurrence: None)
  Receive Date: 20121031
  Receipt Date: 20130318
  Transmission Date: 20140127
  Serious: Yes (Hospitalization)
  Sender: FDA-Public Use
  Company Number: 2012FR0341

PATIENT
  Age: 45 Year
  Sex: Female

DRUGS (1)
  1. KINERET [Suspect]
     Indication: MUCKLE-WELLS SYNDROME
     Route: 058
     Dates: start: 2006

REACTIONS (3)
  - Injection site vasculitis [None]
  - Neutrophilic dermatosis [None]
  - Leukocytoclastic vasculitis [None]
